FAERS Safety Report 7986024-6 (Version None)
Quarter: 2011Q4

REPORT INFORMATION
  Report Type: 
  Country: None (occurrence: None)
  Receive Date: 20111216
  Receipt Date: 20101231
  Transmission Date: 20120403
  Serious: No
  Sender: FDA-Public Use
  Company Number: US-BRISTOL-MYERS SQUIBB COMPANY-15464837

PATIENT
  Age: 7 Year
  Sex: Female

DRUGS (1)
  1. ABILIFY [Suspect]
     Dates: start: 20101208

REACTIONS (2)
  - INTENTIONAL SELF-INJURY [None]
  - ONYCHOPHAGIA [None]
